FAERS Safety Report 8792799 (Version 4)
Quarter: 2012Q4

REPORT INFORMATION
  Report Type: 
  Country: JP (occurrence: JP)
  Receive Date: 20120918
  Receipt Date: 20121114
  Transmission Date: 20130627
  Serious: No
  Sender: FDA-Public Use
  Company Number: JP-GLAXOSMITHKLINE-B0830590A

PATIENT
  Age: 9 Year
  Sex: Male

DRUGS (6)
  1. PAXIL [Suspect]
     Indication: DEPRESSION
     Dosage: 10MG Per day
     Route: 048
     Dates: start: 20120615, end: 20120905
  2. PAXIL [Suspect]
     Indication: DEPRESSION
     Route: 048
     Dates: start: 20120906, end: 20120909
  3. PAXIL [Suspect]
     Indication: DEPRESSION
     Dosage: 10MG Per day
     Route: 048
     Dates: start: 20120910
  4. CONCERTA [Concomitant]
     Indication: ATTENTION DEFICIT/HYPERACTIVITY DISORDER
     Dosage: 18MG Per day
     Route: 048
     Dates: start: 20111108
  5. ABILIFY [Concomitant]
     Indication: AGGRESSION
     Dosage: 1.5MG Twice per day
     Route: 048
     Dates: start: 20120125
  6. GASMOTIN [Concomitant]
     Dosage: 5MG Per day
     Route: 048
     Dates: start: 20111115

REACTIONS (10)
  - Activation syndrome [Recovered/Resolved]
  - Hallucination [Recovered/Resolved]
  - Abnormal behaviour [Recovered/Resolved]
  - Insomnia [Unknown]
  - Aggression [Unknown]
  - Nausea [Unknown]
  - Vomiting [Unknown]
  - Autophobia [Unknown]
  - Aggression [Unknown]
  - Somnolence [Unknown]
